FAERS Safety Report 9816613 (Version 2)
Quarter: 2014Q1

REPORT INFORMATION
  Report Type: Spontaneous
  Country: US (occurrence: US)
  Receive Date: 20140114
  Receipt Date: 20140114
  Transmission Date: 20141002
  Serious: Yes (Other)
  Sender: FDA-Public Use
  Company Number: US-B.I. PHARMACEUTICALS,INC./RIDGEFIELD-2013-BI-22886BP

PATIENT
  Age: 71 Year
  Sex: Female
  Weight: 104.89 kg

DRUGS (4)
  1. PRADAXA [Suspect]
     Dates: start: 20110506, end: 20111024
  2. ATORVASTATIN [Concomitant]
     Dates: start: 20110501, end: 20121002
  3. AMIODARONE HCL [Concomitant]
     Dates: start: 20110501, end: 20121002
  4. AMLODIPINE BESYLATE [Concomitant]
     Dates: start: 20110501, end: 20121002

REACTIONS (2)
  - Rectal haemorrhage [Unknown]
  - Anaemia [Unknown]
